FAERS Safety Report 24219188 (Version 1)
Quarter: 2024Q3

REPORT INFORMATION
  Report Type: Spontaneous
  Country: US (occurrence: None)
  Receive Date: 20240816
  Receipt Date: 20240816
  Transmission Date: 20241017
  Serious: Yes (Hospitalization)
  Sender: Public
  Company Number: None

PATIENT
  Sex: Female

DRUGS (3)
  1. TADALAFIL [Suspect]
     Active Substance: TADALAFIL
     Indication: Pulmonary arterial hypertension
     Dosage: 40MG 1 TIME  A DAY BY MOUTH?
     Route: 048
     Dates: start: 202407
  2. UPTRAVHMIITH 1 TITR) [Concomitant]
  3. AMBRISENTAN [Concomitant]
     Active Substance: AMBRISENTAN

REACTIONS (3)
  - Gastrointestinal haemorrhage [None]
  - Food intolerance [None]
  - Oxygen saturation decreased [None]
